FAERS Safety Report 10232916 (Version 1)
Quarter: 2014Q2

REPORT INFORMATION
  Report Type: Spontaneous
  Country: US (occurrence: None)
  Receive Date: 20140611
  Receipt Date: 20140611
  Transmission Date: 20141212
  Serious: Yes (Life-Threatening, Hospitalization)
  Sender: FDA-Public Use
  Company Number: None

PATIENT
  Age: 53 Year
  Sex: Male
  Weight: 91.17 kg

DRUGS (2)
  1. ANDROGEL 1% [Suspect]
     Indication: HYPOGONADISM
     Dosage: 1 PACK, QD, TRANSDERMAL
     Route: 062
     Dates: start: 20130901, end: 20140501
  2. ANDROGEL 1% [Suspect]
     Indication: ERECTILE DYSFUNCTION
     Dosage: 1 PACK, QD, TRANSDERMAL
     Route: 062
     Dates: start: 20130901, end: 20140501

REACTIONS (1)
  - Myocardial infarction [None]
